FAERS Safety Report 6194847-1 (Version None)
Quarter: 2009Q2

REPORT INFORMATION
  Report Type: 
  Country: None (occurrence: None)
  Receive Date: 20090519
  Receipt Date: 20090512
  Transmission Date: 20091009
  Serious: Yes (Death)
  Sender: FDA-Public Use
  Company Number: US-GILEAD-2009-0021929

PATIENT
  Sex: Female
  Weight: 97.61 kg

DRUGS (23)
  1. LETAIRIS [Suspect]
     Indication: PULMONARY ARTERIAL HYPERTENSION
     Route: 048
     Dates: start: 20080125
  2. OXYGEN [Concomitant]
  3. BUMEX [Concomitant]
  4. VASOTEC [Concomitant]
  5. DIOVAN [Concomitant]
  6. ADVAIR HFA [Concomitant]
  7. XOPENEX [Concomitant]
  8. HYDROCORTISONE [Concomitant]
  9. PREDNISONE [Concomitant]
  10. OXYCONTIN [Concomitant]
  11. XOLAIR [Concomitant]
  12. FLONASE [Concomitant]
  13. DUONEB [Concomitant]
  14. LIPITOR [Concomitant]
  15. ESTRATEST [Concomitant]
  16. NEURONTIN [Concomitant]
  17. CELEXA [Concomitant]
  18. MIRAPEX [Concomitant]
  19. CELEBREX [Concomitant]
  20. DETROL [Concomitant]
  21. ZANTAC [Concomitant]
  22. PROTONIX [Concomitant]
  23. POTASSIUM CHLORIDE [Concomitant]

REACTIONS (1)
  - DEATH [None]
